FAERS Safety Report 8961064 (Version 4)
Quarter: 2013Q4

REPORT INFORMATION
  Report Type: Spontaneous
  Country: JP (occurrence: JP)
  Receive Date: 20121212
  Receipt Date: 20131018
  Transmission Date: 20140711
  Serious: Yes (Other)
  Sender: FDA-Public Use
  Company Number: JP-PFIZER INC-2012259427

PATIENT
  Age: 57 Year
  Sex: Male

DRUGS (5)
  1. RHEUMATREX [Suspect]
     Indication: RHEUMATOID ARTHRITIS
     Dosage: 8 MG/WEEK, 2 CAPSULES, 1 CAPSULE ON DAY 1 AND 1 CAPSULE ON DAY 2
     Route: 048
     Dates: start: 20111129, end: 20121017
  2. CELECOX [Concomitant]
     Indication: RHEUMATOID ARTHRITIS
     Dosage: 100 MG, 2X/DAY
     Route: 048
     Dates: start: 20111129, end: 20120918
  3. CELECOX [Concomitant]
     Indication: PAIN
     Dosage: 100 MG, 2X/DAY
     Route: 048
     Dates: start: 20120918, end: 20121017
  4. OMEPRAL [Concomitant]
     Indication: GASTRITIS
     Dosage: 20 MG, 1X/DAY
     Route: 048
     Dates: start: 20111129, end: 20121017
  5. FOLIAMIN [Concomitant]
     Indication: PROPHYLAXIS
     Dosage: 5 MG, WEEKLY
     Route: 048
     Dates: start: 20111213

REACTIONS (2)
  - Hepatitis B [Recovering/Resolving]
  - Diarrhoea [Recovering/Resolving]
